FAERS Safety Report 8888623 (Version 1)
Quarter: 2012Q4

REPORT INFORMATION
  Report Type: 
  Country: ID (occurrence: ID)
  Receive Date: 20121106
  Receipt Date: 20121106
  Transmission Date: 20130627
  Serious: Yes (Other)
  Sender: FDA-Public Use
  Company Number: PHHY2012ID100623

PATIENT
  Age: 39 Year
  Sex: Female

DRUGS (5)
  1. MYCOPHENOLIC ACID [Suspect]
     Indication: PEMPHIGUS
     Dosage: 2.180 mg, UNK
  2. MYCOPHENOLIC ACID [Suspect]
     Dosage: 2.360 mg, UNK
  3. METHYLPREDISOLONE [Concomitant]
     Indication: PEMPHIGUS
     Dosage: 12 mg, UNK
  4. METHYLPREDISOLONE [Concomitant]
     Dosage: 48 mg, UNK
  5. HEPARIN [Concomitant]
     Indication: PEMPHIGUS

REACTIONS (3)
  - Pustular psoriasis [Recovered/Resolved]
  - Rash pustular [Unknown]
  - Infection [Recovered/Resolved]
